FAERS Safety Report 10227129 (Version 1)
Quarter: 2014Q2

REPORT INFORMATION
  Report Type: Spontaneous
  Country: US (occurrence: US)
  Receive Date: 20140610
  Receipt Date: 20140610
  Transmission Date: 20141212
  Serious: Yes (Other)
  Sender: FDA-Public Use
  Company Number: US-AMGEN INC.-USASP2014041373

PATIENT
  Sex: Female

DRUGS (3)
  1. PROLIA [Suspect]
     Indication: OSTEOPOROSIS
     Dosage: UNK
     Route: 065
     Dates: start: 201305
  2. LANTUS [Concomitant]
  3. HUMALOG [Concomitant]

REACTIONS (3)
  - Spinal column stenosis [Unknown]
  - Blood glucose abnormal [Unknown]
  - Blood glucose decreased [Unknown]
